FAERS Safety Report 5746533-7 (Version None)
Quarter: 2008Q2

REPORT INFORMATION
  Report Type: 
  Country: None (occurrence: None)
  Receive Date: 20080522
  Receipt Date: 20070913
  Transmission Date: 20081010
  Serious: Yes (Hospitalization)
  Sender: FDA-Public Use
  Company Number: US-BRISTOL-MYERS SQUIBB COMPANY-13907944

PATIENT
  Age: 32 Year
  Sex: Male

DRUGS (1)
  1. CYTOXAN [Suspect]

REACTIONS (1)
  - SEPSIS [None]
